FAERS Safety Report 13081466 (Version 2)
Quarter: 2017Q1

REPORT INFORMATION
  Report Type: Spontaneous
  Country: US (occurrence: US)
  Receive Date: 20170103
  Receipt Date: 20170217
  Transmission Date: 20170428
  Serious: No
  Sender: FDA-Public Use
  Company Number: US-PFIZER INC-2016596649

PATIENT
  Age: 17 Month
  Sex: Male

DRUGS (2)
  1. INFANTS ADVIL CONCENTRATED DROPS [Suspect]
     Active Substance: IBUPROFEN
     Dosage: UNK
  2. INFANTS ADVIL CONCENTRATED DROPS [Suspect]
     Active Substance: IBUPROFEN
     Dosage: 1.875 ML, 1X/DAY
     Dates: start: 20161226, end: 20161227

REACTIONS (3)
  - Tongue discomfort [Unknown]
  - Vomiting [Unknown]
  - Throat irritation [Unknown]
